FAERS Safety Report 4779507-3 (Version None)
Quarter: 2005Q3

REPORT INFORMATION
  Report Type: 
  Country: None (occurrence: None)
  Receive Date: 20050923
  Receipt Date: 20050913
  Transmission Date: 20060218
  Serious: Yes (Other)
  Sender: FDA-Public Use
  Company Number: 2005129234

PATIENT
  Age: 16 Year
  Sex: Female

DRUGS (3)
  1. NEURONTIN [Suspect]
     Indication: PAIN
  2. ANALGESICS (ANALGESICS) [Suspect]
     Indication: PAIN
  3. COUGH SYRUP (ANTIMONY POTASSIUM TARTRATE, OPIUM TINCTURE, TERPIN HYDRA [Suspect]
     Indication: ILL-DEFINED DISORDER

REACTIONS (6)
  - DRUG INEFFECTIVE [None]
  - INADEQUATE ANALGESIA [None]
  - INTENTIONAL MISUSE [None]
  - MULTIPLE DRUG OVERDOSE [None]
  - SUICIDAL IDEATION [None]
  - SUICIDE ATTEMPT [None]
